FAERS Safety Report 14201804 (Version 1)
Quarter: 2017Q4

REPORT INFORMATION
  Report Type: Spontaneous
  Country: US (occurrence: US)
  Receive Date: 20171117
  Receipt Date: 20171117
  Transmission Date: 20180321
  Serious: Yes (Other)
  Sender: FDA-Public Use
  Company Number: US-ENDO PHARMACEUTICALS INC-2017-006326

PATIENT
  Age: 37 Year
  Sex: Male
  Weight: 83.9 kg

DRUGS (1)
  1. XIAFLEX [Suspect]
     Active Substance: COLLAGENASE CLOSTRIDIUM HISTOLYTICUM
     Indication: PEYRONIE^S DISEASE
     Dosage: UNKNOWN, CYCLE 1, INJECTIONS 1 AND 2
     Route: 026
     Dates: start: 2017, end: 201711

REACTIONS (2)
  - Fracture of penis [Unknown]
  - Corpora cavernosa surgery [Recovered/Resolved]

NARRATIVE: CASE EVENT DATE: 201711
